FAERS Safety Report 5658872-9 (Version None)
Quarter: 2008Q1

REPORT INFORMATION
  Report Type: 
  Country: None (occurrence: None)
  Receive Date: 20080310
  Receipt Date: 20070430
  Transmission Date: 20080703
  Serious: No
  Sender: FDA-Public Use
  Company Number: US-BAYER-200711334BCC

PATIENT
  Age: 78 Year
  Sex: Female
  Weight: 73 kg

DRUGS (7)
  1. ALEVE [Suspect]
     Indication: DRUG USE FOR UNKNOWN INDICATION
     Dosage: TOTAL DAILY DOSE: 220 MG  UNIT DOSE: 220 MG
     Route: 048
     Dates: start: 20070429
  2. HIGH BLOOD PRESSURE MEDICATION [Concomitant]
  3. ANTI-DEPRESSANT MEDICATION [Concomitant]
  4. 2 DIABETIC MEDICATIONS [Concomitant]
  5. DIURETIC [Concomitant]
  6. PRILOSEC [Concomitant]
  7. PLAVIX [Concomitant]

REACTIONS (1)
  - PRURITUS [None]
